FAERS Safety Report 7801606-X (Version None)
Quarter: 2011Q4

REPORT INFORMATION
  Report Type: 
  Country: None (occurrence: None)
  Receive Date: 20111005
  Receipt Date: 20110929
  Transmission Date: 20120403
  Serious: Yes (Hospitalization, Other)
  Sender: FDA-Public Use
  Company Number: 20096973

PATIENT
  Sex: Male

DRUGS (1)
  1. LIORESAL [Suspect]
     Indication: MUSCLE SPASTICITY
     Dosage: 475 MCG, DAILY, INTRATHECAL
     Route: 037

REACTIONS (9)
  - DEVICE POWER SOURCE ISSUE [None]
  - MUSCLE SPASTICITY [None]
  - ASTHENIA [None]
  - DRUG HYPERSENSITIVITY [None]
  - ABASIA [None]
  - ENTEROCOCCUS TEST POSITIVE [None]
  - URINARY TRACT INFECTION [None]
  - INTERVERTEBRAL DISCITIS [None]
  - MOBILITY DECREASED [None]
